FAERS Safety Report 17842958 (Version 2)
Quarter: 2020Q2

REPORT INFORMATION
  Report Type: Spontaneous
  Country: DE (occurrence: DE)
  Receive Date: 20200530
  Receipt Date: 20200623
  Transmission Date: 20200714
  Serious: Yes (Life-Threatening, Hospitalization, Other)
  Sender: FDA-Public Use
  Company Number: NVSC2020DE149361

PATIENT
  Age: 35 Year
  Sex: Male

DRUGS (2)
  1. IBUPROFEN. [Concomitant]
     Active Substance: IBUPROFEN
     Indication: INTERVERTEBRAL DISC PROTRUSION
     Dosage: 600 MG, UNKNOWN
     Route: 065
     Dates: start: 20190517
  2. NOVAMINSULFON 500 - 1 A PHARMA [Suspect]
     Active Substance: METAMIZOLE SODIUM
     Indication: INTERVERTEBRAL DISC PROTRUSION
     Dosage: 500 MG, UNKNOWN
     Route: 065
     Dates: start: 20200103, end: 20200206

REACTIONS (3)
  - Agranulocytosis [Recovered/Resolved]
  - Pyrexia [Recovered/Resolved]
  - Pharyngitis [Recovered/Resolved]

NARRATIVE: CASE EVENT DATE: 20200207
